FAERS Safety Report 20472440 (Version 1)
Quarter: 2022Q1

REPORT INFORMATION
  Report Type: Spontaneous
  Country: US (occurrence: None)
  Receive Date: 20220215
  Receipt Date: 20220215
  Transmission Date: 20220423
  Serious: No
  Sender: FDA-Public Use
  Company Number: 2022A060292

PATIENT
  Sex: Female
  Weight: 49.9 kg

DRUGS (3)
  1. BUDESONIDE\FORMOTEROL [Suspect]
     Active Substance: BUDESONIDE\FORMOTEROL
     Indication: Respiration abnormal
     Dosage: 80/4.5, 120 INHALATIONS, TWICE DAILY
     Route: 055
  2. BUDESONIDE\FORMOTEROL [Suspect]
     Active Substance: BUDESONIDE\FORMOTEROL
     Indication: Respiration abnormal
     Dosage: 80/4.5, 120 INHALATIONS, ONCE DAILY
     Route: 055
  3. BUDESONIDE\FORMOTEROL [Suspect]
     Active Substance: BUDESONIDE\FORMOTEROL
     Indication: Respiration abnormal
     Dosage: 80/4.5, 120 INHALATIONS, ONCE DAILY
     Route: 055

REACTIONS (4)
  - Gingival discomfort [Unknown]
  - Rash erythematous [Recovered/Resolved]
  - Wrong technique in device usage process [Recovered/Resolved]
  - Product dose omission issue [Recovered/Resolved]
